FAERS Safety Report 21702296 (Version 1)
Quarter: 2022Q4

REPORT INFORMATION
  Report Type: Report from Study
  Country: CA (occurrence: CA)
  Receive Date: 20221208
  Receipt Date: 20221208
  Transmission Date: 20230113
  Serious: Yes (Death, Hospitalization)
  Sender: FDA-Public Use
  Company Number: CA-BIOGEN-2022BI01173785

PATIENT
  Age: 75 Year
  Sex: Female

DRUGS (1)
  1. TECFIDERA [Suspect]
     Active Substance: DIMETHYL FUMARATE
     Indication: Multiple sclerosis
     Route: 050
     Dates: start: 20161214, end: 20221127

REACTIONS (2)
  - Pyelonephritis [Fatal]
  - Septic shock [Fatal]

NARRATIVE: CASE EVENT DATE: 20221127
